FAERS Safety Report 5031823-6 (Version None)
Quarter: 2006Q2

REPORT INFORMATION
  Report Type: 
  Country: None (occurrence: None)
  Receive Date: 20060616
  Receipt Date: 20060515
  Transmission Date: 20061013
  Serious: Yes (Other)
  Sender: FDA-Public Use
  Company Number: 0601280US

PATIENT
  Age: 67 Year
  Sex: Male

DRUGS (2)
  1. EXOCIN          (OFLOXACIN) EYE DROPS [Suspect]
     Indication: KERATITIS BACTERIAL
     Dosage: 1 GTT, Q1HR, OPHTHALMIC
     Route: 047
  2. EXOCIN          (OFLOXACIN) EYE DROPS [Suspect]
     Indication: KERATITIS BACTERIAL
     Dosage: 1 GTT, Q1HR, OPHTHALMIC
     Route: 047

REACTIONS (3)
  - DISEASE PROGRESSION [None]
  - DRUG INEFFECTIVE [None]
  - KERATITIS BACTERIAL [None]
